FAERS Safety Report 8184313 (Version 5)
Quarter: 2023Q1

REPORT INFORMATION
  Report Type: Spontaneous
  Country: NL (occurrence: NL)
  Receive Date: 20111017
  Receipt Date: 20230307
  Transmission Date: 20230418
  Serious: Yes (Life-Threatening, Hospitalization)
  Sender: FDA-Public Use
  Company Number: NL-BAYER-2011-098495

PATIENT
  Age: 81 Year
  Sex: Female

DRUGS (1)
  1. GADOBUTROL [Suspect]
     Active Substance: GADOBUTROL
     Indication: Angiogram
     Dosage: 15 ML, ONCE
     Route: 042
     Dates: start: 20111006, end: 20111006

REACTIONS (4)
  - Acute respiratory distress syndrome [Recovering/Resolving]
  - Anaphylactic shock [Recovering/Resolving]
  - Malaise [Recovering/Resolving]
  - Unevaluable event [Recovering/Resolving]

NARRATIVE: CASE EVENT DATE: 20111006
